FAERS Safety Report 17059175 (Version 1)
Quarter: 2019Q4

REPORT INFORMATION
  Report Type: Spontaneous
  Country: US (occurrence: US)
  Receive Date: 20191023
  Receipt Date: 20191023
  Transmission Date: 20200122
  Serious: No
  Sender: FDA-Public Use
  Company Number: None

PATIENT
  Age: 56 Year
  Sex: Female
  Weight: 78.02 kg

DRUGS (2)
  1. DULOXETINE 60MG [Suspect]
     Active Substance: DULOXETINE
     Indication: ANXIETY
     Dates: start: 2017
  2. DULOXETINE 60MG [Suspect]
     Active Substance: DULOXETINE
     Indication: ANXIETY
     Route: 048
     Dates: start: 2016, end: 2017

REACTIONS (1)
  - Nightmare [None]
